FAERS Safety Report 6394921-0 (Version None)
Quarter: 2009Q4

REPORT INFORMATION
  Report Type: 
  Country: None (occurrence: None)
  Receive Date: 20091009
  Receipt Date: 20090930
  Transmission Date: 20100525
  Serious: Yes (Hospitalization, Other)
  Sender: FDA-Public Use
  Company Number: BR-ROCHE-659752

PATIENT
  Sex: Female
  Weight: 53 kg

DRUGS (5)
  1. BONIVA [Suspect]
     Indication: OSTEOPOROSIS
     Route: 048
     Dates: start: 20080918
  2. AMLO [Concomitant]
     Indication: BLOOD PRESSURE ABNORMAL
     Route: 048
     Dates: start: 20020101
  3. MAGISTROL [Concomitant]
     Indication: HORMONE REPLACEMENT THERAPY
     Route: 048
  4. DUSPATALIN [Concomitant]
  5. PANTOCAL [Concomitant]
     Indication: GASTRITIS
     Dosage: START DATE; MORE THAN 1999
     Dates: start: 19990101

REACTIONS (6)
  - ABDOMINAL PAIN UPPER [None]
  - DISCOMFORT [None]
  - GASTRITIS [None]
  - IRRITABLE BOWEL SYNDROME [None]
  - NAUSEA [None]
  - WEIGHT DECREASED [None]
